FAERS Safety Report 13224982 (Version 1)
Quarter: 2017Q1

REPORT INFORMATION
  Report Type: Spontaneous
  Country: US (occurrence: US)
  Receive Date: 20170213
  Receipt Date: 20170213
  Transmission Date: 20170428
  Serious: Yes (Other)
  Sender: FDA-Public Use
  Company Number: US-BION-005969

PATIENT
  Age: 76 Year
  Sex: Female

DRUGS (3)
  1. PHENYLEPHRINE [Suspect]
     Active Substance: PHENYLEPHRINE\PHENYLEPHRINE HYDROCHLORIDE
     Indication: LENS EXTRACTION
     Dosage: LIDOCAINE HCL 1% AND PHENYLEPHRINE 2.5% INADVERTENTLY PRESERVED WITH 10% BENZALKONIUM CHLORIDE
  2. LIDOCAINE HYDROCHLORIDE. [Suspect]
     Active Substance: LIDOCAINE HYDROCHLORIDE
     Indication: LENS EXTRACTION
     Dosage: LIDOCAINE HCL 1% AND PHENYLEPHRINE 2.5% INADVERTENTLY PRESERVED WITH 10% BENZALKONIUM CHLORIDE
  3. BENZALKONIUM [Suspect]
     Active Substance: BENZALKONIUM
     Indication: LENS EXTRACTION
     Dosage: LIDOCAINE 1% AND PHENYLEPHRINE 2.5% PRESERVED WITH 10% BENZALKONIUM CHLORIDE

REACTIONS (2)
  - Incorrect product formulation administered [Not Recovered/Not Resolved]
  - Toxic anterior segment syndrome [Recovering/Resolving]
